FAERS Safety Report 7728660-8 (Version None)
Quarter: 2011Q3

REPORT INFORMATION
  Report Type: 
  Country: None (occurrence: None)
  Receive Date: 20110906
  Receipt Date: 20110822
  Transmission Date: 20111222
  Serious: Yes (Other)
  Sender: FDA-Public Use
  Company Number: GB-JNJFOC-20110810900

PATIENT
  Sex: Male
  Weight: 88.9 kg

DRUGS (16)
  1. RITONAVIR [Concomitant]
     Indication: HIV INFECTION
     Route: 065
  2. ASPIRIN [Concomitant]
     Dosage: EVERY MORNING
     Route: 048
     Dates: start: 20101130
  3. CLOPIDOGREL [Concomitant]
     Dosage: EVERY MORNING
     Route: 048
     Dates: start: 20101130
  4. IBUPROFEN [Concomitant]
     Route: 065
  5. PREZISTA [Suspect]
     Indication: HIV INFECTION
     Route: 048
     Dates: start: 20101130, end: 20110816
  6. DOXAZOSIN MESYLATE [Concomitant]
     Dosage: EVERY MORNING
     Route: 048
     Dates: start: 20101130
  7. MULTI-VITAMINS [Concomitant]
     Route: 065
  8. FOLIC ACID [Concomitant]
     Route: 065
  9. LACTULOSE [Concomitant]
     Route: 065
  10. BACLOFEN [Concomitant]
     Route: 065
  11. FUROSEMIDE [Concomitant]
     Dosage: EVERY MORNING
     Route: 065
  12. SIMVASTATIN [Concomitant]
     Dosage: EVERY NIGHT
     Route: 048
     Dates: start: 20101130
  13. AMLODIPINE [Concomitant]
     Dosage: EVERY MORNING
     Route: 048
     Dates: start: 20101130
  14. ALLOPURINOL [Concomitant]
     Dosage: EVERY MORNING
     Route: 048
     Dates: start: 20101130
  15. TRUVADA [Concomitant]
     Indication: HIV INFECTION
     Route: 048
  16. ACETAMINOPHEN [Concomitant]
     Dosage: AS REQUIRED
     Route: 065

REACTIONS (4)
  - DYSPNOEA [None]
  - PALPITATIONS [None]
  - CEREBROVASCULAR ACCIDENT [None]
  - WEIGHT INCREASED [None]
